FAERS Safety Report 7705577-6 (Version None)
Quarter: 2011Q3

REPORT INFORMATION
  Report Type: 
  Country: None (occurrence: None)
  Receive Date: 20110824
  Receipt Date: 20110816
  Transmission Date: 20111222
  Serious: Yes (Hospitalization)
  Sender: FDA-Public Use
  Company Number: US-AMGEN-USASP2011041651

PATIENT
  Age: 51 Year
  Sex: Female

DRUGS (1)
  1. ENBREL [Suspect]
     Indication: PSORIASIS
     Dates: start: 20091209, end: 20101114

REACTIONS (6)
  - RENAL FAILURE [None]
  - VOMITING [None]
  - PSORIASIS [None]
  - FALL [None]
  - HEPATIC FAILURE [None]
  - LOWER LIMB FRACTURE [None]
